FAERS Safety Report 18516993 (Version 1)
Quarter: 2020Q4

REPORT INFORMATION
  Report Type: Report from Study
  Country: US (occurrence: US)
  Receive Date: 20201118
  Receipt Date: 20201118
  Transmission Date: 20210114
  Serious: Yes (Hospitalization, Other)
  Sender: FDA-Public Use
  Company Number: US-ASTELLAS-2020US040353

PATIENT
  Age: 79 Year
  Sex: Male

DRUGS (1)
  1. ENZALUTAMIDE [Suspect]
     Active Substance: ENZALUTAMIDE
     Indication: PRODUCT USED FOR UNKNOWN INDICATION
     Route: 065
     Dates: start: 20180726

REACTIONS (4)
  - Hypotension [Recovering/Resolving]
  - Myocardial infarction [Recovering/Resolving]
  - Limb discomfort [Recovering/Resolving]
  - Coronary artery occlusion [Recovering/Resolving]

NARRATIVE: CASE EVENT DATE: 202009
